FAERS Safety Report 19066406 (Version 1)
Quarter: 2021Q1

REPORT INFORMATION
  Report Type: Spontaneous
  Country: US (occurrence: US)
  Receive Date: 20210328
  Receipt Date: 20210328
  Transmission Date: 20210420
  Serious: Yes (Other)
  Sender: FDA-Public Use
  Company Number: US-TEVA-2021-US-1894022

PATIENT
  Sex: Female

DRUGS (1)
  1. MORPHINE SULFATE. [Suspect]
     Active Substance: MORPHINE SULFATE
     Indication: PAIN
     Route: 065
     Dates: start: 2020

REACTIONS (5)
  - Fall [Unknown]
  - Product quality issue [Unknown]
  - Multiple fractures [Unknown]
  - Gait disturbance [Unknown]
  - Feeling abnormal [Unknown]
